FAERS Safety Report 15114370 (Version 1)
Quarter: 2018Q2

REPORT INFORMATION
  Report Type: Spontaneous
  Country: US (occurrence: US)
  Receive Date: 20180612
  Receipt Date: 20180612
  Transmission Date: 20180711
  Serious: Yes (Hospitalization)
  Sender: FDA-Public Use
  Company Number: None

PATIENT
  Age: 77 Year
  Sex: Female
  Weight: 65.8 kg

DRUGS (13)
  1. LIPITOR [Concomitant]
     Active Substance: ATORVASTATIN CALCIUM
  2. KEFLEX [Concomitant]
     Active Substance: CEPHALEXIN
  3. AMLODIPINE [Concomitant]
     Active Substance: AMLODIPINE BESYLATE
  4. ROCALTROL [Concomitant]
     Active Substance: CALCITRIOL
  5. LOFIBRA [Concomitant]
     Active Substance: FENOFIBRATE
  6. LASIX [Concomitant]
     Active Substance: FUROSEMIDE
  7. VITAMIN D3 [Concomitant]
     Active Substance: CHOLECALCIFEROL
  8. OMEGA 3 [Concomitant]
     Active Substance: OMEGA-3 FATTY ACIDS
  9. ASA [Concomitant]
     Active Substance: ASPIRIN
  10. PLAVIX [Suspect]
     Active Substance: CLOPIDOGREL BISULFATE
     Indication: CORONARY ARTERY DISEASE
     Route: 048
  11. LOVENOX [Suspect]
     Active Substance: ENOXAPARIN SODIUM
     Indication: CORONARY ARTERY DISEASE
     Dosage: ?          OTHER FREQUENCY:Q24HOURS;?
     Route: 058
  12. VITAMIN B12 [Concomitant]
     Active Substance: CYANOCOBALAMIN
  13. FE [Concomitant]
     Active Substance: IRON

REACTIONS (5)
  - Cardiac failure acute [None]
  - Post procedural haematuria [None]
  - Hypoglycaemia [None]
  - Angina unstable [None]
  - Thrombosis [None]

NARRATIVE: CASE EVENT DATE: 20180305
